FAERS Safety Report 4342814-2 (Version None)
Quarter: 2004Q2

REPORT INFORMATION
  Report Type: 
  Country: None (occurrence: None)
  Receive Date: 20040415
  Receipt Date: 20040405
  Transmission Date: 20050107
  Serious: Yes (Hospitalization)
  Sender: FDA-Public Use
  Company Number: US060025

PATIENT
  Age: 56 Year
  Sex: Female

DRUGS (10)
  1. KINERET [Suspect]
     Indication: RHEUMATOID ARTHRITIS
     Dosage: 100 MG, DAILY, SC
     Route: 058
     Dates: start: 20031111, end: 20031116
  2. PREDNISONE [Suspect]
     Indication: RHEUMATOID ARTHRITIS
     Dosage: 5 MG, DAILY, PO
     Dates: start: 20020710
  3. HYDROXYCHLOROQUINE SULFATE [Concomitant]
  4. VALSARTAN [Concomitant]
  5. OMEPRAZOLE [Concomitant]
  6. DICLOFENAC SODIUM [Concomitant]
  7. FLUOXETINE [Concomitant]
  8. VALDECOXIB [Concomitant]
  9. DOXEPIN HCL [Concomitant]
  10. ENBREL [Suspect]
     Indication: RHEUMATOID ARTHRITIS
     Dosage: 25 MG, 2 IN 1 WEEKS, SC
     Route: 058
     Dates: start: 20030409, end: 20031016

REACTIONS (3)
  - CELLULITIS [None]
  - PYODERMA [None]
  - STAPHYLOCOCCAL ABSCESS [None]
